FAERS Safety Report 5810146-9 (Version None)
Quarter: 2008Q3

REPORT INFORMATION
  Report Type: 
  Country: None (occurrence: None)
  Receive Date: 20080715
  Receipt Date: 20071017
  Transmission Date: 20090109
  Serious: No
  Sender: FDA-Public Use
  Company Number: A0667678A

PATIENT
  Age: 49 Year
  Sex: Female

DRUGS (5)
  1. IMITREX [Suspect]
     Indication: MIGRAINE
     Dosage: 100MG TWICE PER DAY
     Route: 048
     Dates: start: 20070730
  2. IMITREX [Suspect]
     Route: 065
  3. EFFEXOR [Concomitant]
  4. NAPROXEN SODIUM [Concomitant]
  5. IMITREX [Concomitant]

REACTIONS (2)
  - DRUG INEFFECTIVE [None]
  - PHARMACEUTICAL PRODUCT COMPLAINT [None]
